FAERS Safety Report 11519034 (Version 2)
Quarter: 2016Q3

REPORT INFORMATION
  Report Type: Spontaneous
  Country: US (occurrence: US)
  Receive Date: 20150917
  Receipt Date: 20160919
  Transmission Date: 20161109
  Serious: No
  Sender: FDA-Public Use
  Company Number: US-ALLERGAN-1512986US

PATIENT
  Age: 71 Year
  Sex: Female

DRUGS (2)
  1. THYROXINE [Concomitant]
     Active Substance: LEVOTHYROXINE
     Dosage: 100 ?G, UNK
  2. VANIQA [Suspect]
     Active Substance: EFLORNITHINE HYDROCHLORIDE
     Indication: HIRSUTISM
     Dosage: 13.9 %, UNK
     Route: 061
     Dates: start: 201506

REACTIONS (1)
  - Sebaceous gland disorder [Recovered/Resolved]
